FAERS Safety Report 15356729 (Version 2)
Quarter: 2018Q4

REPORT INFORMATION
  Report Type: Spontaneous
  Country: BR (occurrence: BR)
  Receive Date: 20180906
  Receipt Date: 20181025
  Transmission Date: 20190204
  Serious: Yes (Hospitalization, Other)
  Sender: FDA-Public Use
  Company Number: BR-JNJFOC-20180844574

PATIENT
  Sex: Male

DRUGS (1)
  1. ZYTIGA [Suspect]
     Active Substance: ABIRATERONE ACETATE
     Indication: PROSTATE CANCER
     Route: 048
     Dates: start: 201804

REACTIONS (4)
  - Suspected counterfeit product [Unknown]
  - Hospitalisation [Unknown]
  - Drug ineffective [Unknown]
  - Metastases to spine [Unknown]

NARRATIVE: CASE EVENT DATE: 2018
